FAERS Safety Report 7258930-1 (Version None)
Quarter: 2011Q1

REPORT INFORMATION
  Report Type: 
  Country: None (occurrence: None)
  Receive Date: 20110129
  Receipt Date: 20100615
  Transmission Date: 20110831
  Serious: No
  Sender: FDA-Public Use
  Company Number: US-ABBOTT-10P-163-0651285-00

PATIENT
  Age: 61 Year
  Sex: Female

DRUGS (1)
  1. HUMIRA [Suspect]
     Indication: RHEUMATOID ARTHRITIS
     Dosage: EVERY 6-7 WEEKS (VARIES)
     Dates: start: 20020201, end: 20100501

REACTIONS (3)
  - PAIN OF SKIN [None]
  - HERPES ZOSTER [None]
  - HYPERAESTHESIA [None]
